FAERS Safety Report 7418395-3 (Version None)
Quarter: 2011Q2

REPORT INFORMATION
  Report Type: 
  Country: None (occurrence: None)
  Receive Date: 20110415
  Receipt Date: 20110406
  Transmission Date: 20111010
  Serious: Yes (Death, Hospitalization)
  Sender: FDA-Public Use
  Company Number: DE-BRISTOL-MYERS SQUIBB COMPANY-15671308

PATIENT
  Age: 71 Year
  Sex: Male
  Weight: 146 kg

DRUGS (4)
  1. CETUXIMAB [Suspect]
     Indication: NON-SMALL CELL LUNG CANCER
     Dosage: 557.5MG
     Route: 042
     Dates: start: 20110106
  2. GEMCITABINE HCL [Suspect]
     Indication: NON-SMALL CELL LUNG CANCER
     Dosage: 2676MG
     Route: 042
     Dates: start: 20110106
  3. CARBOPLATIN [Suspect]
     Indication: NON-SMALL CELL LUNG CANCER
     Dosage: AUC 5
     Route: 042
     Dates: start: 20110106
  4. AMPICILLIN AND SULBACTAM [Concomitant]

REACTIONS (1)
  - BONE MARROW FAILURE [None]
